FAERS Safety Report 6137467-7 (Version None)
Quarter: 2009Q1

REPORT INFORMATION
  Report Type: 
  Country: None (occurrence: None)
  Receive Date: 20090326
  Receipt Date: 20090314
  Transmission Date: 20090719
  Serious: Yes (Hospitalization)
  Sender: FDA-Public Use
  Company Number: DAV-AE-MTX-09-026

PATIENT
  Age: 18 Year
  Sex: Female

DRUGS (1)
  1. METHOTREXATE [Suspect]
     Indication: MALIGNANT FIBROUS HISTIOCYTOMA
     Dosage: 12 G/M SQ OVER 4H IV
     Route: 042

REACTIONS (4)
  - ASTHENIA [None]
  - DYSPHASIA [None]
  - HEADACHE [None]
  - HEMIPARESIS [None]
